FAERS Safety Report 20086969 (Version 1)
Quarter: 2021Q4

REPORT INFORMATION
  Report Type: Spontaneous
  Country: HR (occurrence: HR)
  Receive Date: 20211118
  Receipt Date: 20211118
  Transmission Date: 20220303
  Serious: Yes (Hospitalization)
  Sender: FDA-Public Use
  Company Number: None

PATIENT
  Age: 73 Year
  Sex: Female
  Weight: 34 kg

DRUGS (2)
  1. LENALIDOMIDE [Suspect]
     Active Substance: LENALIDOMIDE
     Indication: Plasma cell myeloma
     Dosage: 10MILLIGRAM,ADDITIONAL INFORMATION:ADR IS ADEQUATELY LABELLED: YES.
     Route: 048
     Dates: start: 20210929, end: 20211006
  2. NINLARO [Suspect]
     Active Substance: IXAZOMIB CITRATE
     Indication: Plasma cell myeloma
     Dosage: 4 MILLIGRAM,ADDITIONAL INFORMATION:ADR IS ADEQUATELY LABELLED: DIARRHEA, VOMITING, ENTEROCOLITIS.?AD
     Route: 048
     Dates: start: 20210929, end: 20211006

REACTIONS (4)
  - Enterocolitis [Recovering/Resolving]
  - Acute kidney injury [Recovering/Resolving]
  - Vomiting [Recovering/Resolving]
  - Diarrhoea [Recovering/Resolving]

NARRATIVE: CASE EVENT DATE: 20211006
